FAERS Safety Report 4311961-3 (Version None)
Quarter: 2004Q1

REPORT INFORMATION
  Report Type: 
  Country: None (occurrence: None)
  Receive Date: 20040303
  Receipt Date: 20040220
  Transmission Date: 20041129
  Serious: No
  Sender: FDA-Public Use
  Company Number: 2004PK00386

PATIENT
  Age: 30 Year
  Sex: Male
  Weight: 72 kg

DRUGS (5)
  1. NEXIUM [Suspect]
     Indication: PROPHYLAXIS
     Dosage: 40 MG DAILY PO
     Route: 048
     Dates: start: 20040109, end: 20040119
  2. AMOXICILLIN [Suspect]
     Indication: INFECTION PROPHYLAXIS
     Dosage: 2250 MG DAILY PO
     Route: 048
     Dates: start: 20040109, end: 20040119
  3. DAFALGAN [Concomitant]
  4. SERESTA [Concomitant]
  5. CHLORHEXIDINE EYEDROPS [Concomitant]

REACTIONS (2)
  - DRUG INTERACTION [None]
  - NEUTROPENIA [None]
